FAERS Safety Report 16082288 (Version 1)
Quarter: 2019Q1

REPORT INFORMATION
  Report Type: Spontaneous
  Country: US (occurrence: US)
  Receive Date: 20190318
  Receipt Date: 20190318
  Transmission Date: 20190418
  Serious: Yes (Other)
  Sender: FDA-Public Use
  Company Number: US-ROCHE-2283987

PATIENT
  Sex: Male
  Weight: 99.88 kg

DRUGS (2)
  1. LUCENTIS [Suspect]
     Active Substance: RANIBIZUMAB
     Indication: NEOVASCULAR AGE-RELATED MACULAR DEGENERATION
     Dosage: RIGHT EYE INJECTIONS EVERY 5 WEEKS
     Route: 050
     Dates: start: 20061204
  2. LUCENTIS [Suspect]
     Active Substance: RANIBIZUMAB
     Dosage: LEFT EYE INJECTIONS ;ONGOING: UNKNOWN
     Route: 050
     Dates: start: 20180904

REACTIONS (4)
  - Drug ineffective [Unknown]
  - Eye disorder [Unknown]
  - Atrial fibrillation [Recovered/Resolved]
  - Blindness unilateral [Unknown]

NARRATIVE: CASE EVENT DATE: 20170315
